FAERS Safety Report 21336793 (Version 1)
Quarter: 2022Q3

REPORT INFORMATION
  Report Type: Spontaneous
  Country: JP (occurrence: JP)
  Receive Date: 20220915
  Receipt Date: 20220915
  Transmission Date: 20221026
  Serious: Yes (Hospitalization)
  Sender: FDA-Public Use
  Company Number: JP-STRIDES ARCOLAB LIMITED-2022SP011670

PATIENT
  Age: 29 Year
  Sex: Male

DRUGS (4)
  1. AMOXICILLIN [Suspect]
     Active Substance: AMOXICILLIN
     Indication: Primary syphilis
     Dosage: 1500 MG/DAY (DIVIDED INTO THREE DOSES) FOR 61 DAYS
     Route: 065
  2. FAVIPIRAVIR [Concomitant]
     Active Substance: FAVIPIRAVIR
     Indication: COVID-19
     Dosage: 1800 MILLIGRAM, EVERY 12 HRS (ON DAY 1)
     Route: 065
  3. FAVIPIRAVIR [Concomitant]
     Active Substance: FAVIPIRAVIR
     Dosage: 800 MILLIGRAM, EVERY 12 HRS (DAY 2 TO DAY 14)
     Route: 065
  4. CICLESONIDE [Concomitant]
     Active Substance: CICLESONIDE
     Indication: COVID-19
     Dosage: 200 MICROGRAM, BID (200 MICROG OF INHALED CICLESONIDE 2 INHALATIONS, TWICE DAILY)

REACTIONS (2)
  - Jarisch-Herxheimer reaction [Recovered/Resolved]
  - Off label use [Unknown]
